FAERS Safety Report 24361387 (Version 1)
Quarter: 2024Q3

REPORT INFORMATION
  Report Type: Spontaneous
  Country: CN (occurrence: CN)
  Receive Date: 20240925
  Receipt Date: 20240925
  Transmission Date: 20241017
  Serious: Yes (Hospitalization)
  Sender: ROCHE
  Company Number: CN-002147023-NVSC2024CN187991

PATIENT

DRUGS (1)
  1. OMALIZUMAB [Suspect]
     Active Substance: OMALIZUMAB
     Indication: Urticaria
     Dosage: 300 MG
     Route: 050
     Dates: start: 20240916

REACTIONS (2)
  - Back pain [Unknown]
  - Chest pain [Unknown]

NARRATIVE: CASE EVENT DATE: 20240917
